FAERS Safety Report 24275132 (Version 1)
Quarter: 2024Q3

REPORT INFORMATION
  Report Type: Report from Study
  Country: BG (occurrence: BG)
  Receive Date: 20240902
  Receipt Date: 20240902
  Transmission Date: 20241017
  Serious: Yes (Hospitalization)
  Sender: ABBVIE
  Company Number: BG-ABBVIE-5902757

PATIENT
  Age: 55 Year
  Sex: Female

DRUGS (1)
  1. RINVOQ [Suspect]
     Active Substance: UPADACITINIB
     Indication: Rheumatoid arthritis
     Dosage: LAST ADMIN DATE 2024
     Route: 048
     Dates: start: 20240404

REACTIONS (2)
  - Nephritis [Unknown]
  - Leiomyoma [Unknown]

NARRATIVE: CASE EVENT DATE: 20240101
